FAERS Safety Report 18468682 (Version 1)
Quarter: 2020Q4

REPORT INFORMATION
  Report Type: Spontaneous
  Country: US (occurrence: US)
  Receive Date: 20201105
  Receipt Date: 20201105
  Transmission Date: 20210114
  Serious: Yes (Death, Life-Threatening, Hospitalization)
  Sender: FDA-Public Use
  Company Number: US-MYLANLABS-2020M1092874

PATIENT
  Age: 54 Year
  Sex: Male

DRUGS (17)
  1. INSULIN GLARGINE [Suspect]
     Active Substance: INSULIN GLARGINE
     Indication: EVIDENCE BASED TREATMENT
     Route: 042
  2. NALOXONE [Concomitant]
     Active Substance: NALOXONE
     Indication: CARDIAC ARREST
  3. AMIODARONE [Concomitant]
     Active Substance: AMIODARONE
     Indication: VENTRICULAR FIBRILLATION
     Route: 042
  4. ROCURONIUM [Concomitant]
     Active Substance: ROCURONIUM BROMIDE
     Indication: ENDOTRACHEAL INTUBATION
     Route: 042
  5. ASPIRIN                            /00002701/ [Concomitant]
     Active Substance: ASPIRIN
     Indication: PRODUCT USED FOR UNKNOWN INDICATION
     Route: 054
  6. NOREPINEPHRINE. [Suspect]
     Active Substance: NOREPINEPHRINE
     Indication: CARDIAC ARREST
  7. SODIUM BICARBONATE. [Concomitant]
     Active Substance: SODIUM BICARBONATE
     Indication: EVIDENCE BASED TREATMENT
     Route: 042
  8. KETAMINE [Concomitant]
     Active Substance: KETAMINE
     Indication: ENDOTRACHEAL INTUBATION
     Route: 042
  9. EPINEPHRINE. [Suspect]
     Active Substance: EPINEPHRINE
     Indication: VENTRICULAR FIBRILLATION
     Dosage: UNK
     Route: 040
  10. VASOPRESSIN. [Suspect]
     Active Substance: VASOPRESSIN
     Indication: VENTRICULAR FIBRILLATION
     Route: 042
  11. NOREPINEPHRINE. [Suspect]
     Active Substance: NOREPINEPHRINE
     Indication: VENTRICULAR FIBRILLATION
     Route: 042
  12. VASOPRESSIN. [Suspect]
     Active Substance: VASOPRESSIN
     Indication: CARDIAC ARREST
  13. EPINEPHRINE. [Suspect]
     Active Substance: EPINEPHRINE
     Indication: CARDIAC ARREST
     Dosage: INTRAVENOUS INFUSION
     Route: 042
  14. CALCIUM CHLORIDE. [Suspect]
     Active Substance: CALCIUM CHLORIDE
     Indication: EVIDENCE BASED TREATMENT
     Route: 042
  15. AMIODARONE [Concomitant]
     Active Substance: AMIODARONE
     Indication: CARDIAC ARREST
  16. DEXTROSE. [Suspect]
     Active Substance: DEXTROSE
     Indication: EVIDENCE BASED TREATMENT
     Route: 042
  17. NALOXONE [Concomitant]
     Active Substance: NALOXONE
     Indication: VENTRICULAR FIBRILLATION
     Route: 042

REACTIONS (9)
  - Arrhythmia [Fatal]
  - Rhabdomyolysis [Unknown]
  - Renal failure [Unknown]
  - Anuria [Unknown]
  - Metabolic alkalosis [Unknown]
  - General physical health deterioration [Unknown]
  - Hypercalcaemia [Recovered/Resolved]
  - Hypertension [Unknown]
  - Hypokalaemia [Unknown]
